FAERS Safety Report 9540411 (Version 1)
Quarter: 2013Q3

REPORT INFORMATION
  Report Type: Spontaneous
  Country: BR (occurrence: BR)
  Receive Date: 20130920
  Receipt Date: 20130920
  Transmission Date: 20140515
  Serious: Yes (Other)
  Sender: FDA-Public Use
  Company Number: BR-GLAXOSMITHKLINE-A1042178A

PATIENT
  Age: 15 Year
  Sex: Female

DRUGS (2)
  1. ZOFRAN [Suspect]
     Indication: PRODUCT USED FOR UNKNOWN INDICATION
     Dosage: 4TAB SINGLE DOSE
     Route: 048
     Dates: start: 20130829, end: 20130829
  2. AMINOPHYLLINE [Suspect]
     Indication: PRODUCT USED FOR UNKNOWN INDICATION
     Dosage: 16TAB SINGLE DOSE
     Route: 048
     Dates: start: 20130829, end: 20130829

REACTIONS (2)
  - Suicide attempt [Recovered/Resolved]
  - Polyuria [Not Recovered/Not Resolved]
